FAERS Safety Report 10041326 (Version 1)
Quarter: 2014Q1

REPORT INFORMATION
  Report Type: Spontaneous
  Country: US (occurrence: None)
  Receive Date: 20140326
  Receipt Date: 20140326
  Transmission Date: 20141002
  Serious: Yes (Other)
  Sender: FDA-Public Use
  Company Number: None

PATIENT
  Age: 71 Year
  Sex: Male
  Weight: 92.7 kg

DRUGS (4)
  1. BLEOMYCIN [Suspect]
  2. DACARBAZINE [Suspect]
  3. DOXORUBICIN HYDROCHLORIDE [Suspect]
  4. VINBLASTINE SULFATE [Suspect]

REACTIONS (4)
  - Squamous cell carcinoma [None]
  - Refusal of treatment by patient [None]
  - Refractory anaemia with an excess of blasts [None]
  - Myelodysplastic syndrome [None]
